FAERS Safety Report 9327912 (Version 1)
Quarter: 2013Q2

REPORT INFORMATION
  Report Type: Spontaneous
  Country: US (occurrence: US)
  Receive Date: 20130604
  Receipt Date: 20130604
  Transmission Date: 20140414
  Serious: No
  Sender: FDA-Public Use
  Company Number: US-SANOFI-AVENTIS-2012SA041278

PATIENT
  Age: 62 Year
  Sex: Male

DRUGS (3)
  1. LANTUS SOLOSTAR [Suspect]
     Dosage: DOSE:70 UNIT(S)
     Route: 058
     Dates: start: 20120604
  2. SOLOSTAR [Suspect]
     Dates: start: 20120604
  3. NOVOLOG [Concomitant]

REACTIONS (2)
  - Malaise [Not Recovered/Not Resolved]
  - Blood glucose increased [Not Recovered/Not Resolved]
